FAERS Safety Report 15931481 (Version 2)
Quarter: 2019Q3

REPORT INFORMATION
  Report Type: Spontaneous
  Country: US (occurrence: US)
  Receive Date: 20190207
  Receipt Date: 20190708
  Transmission Date: 20191004
  Serious: No
  Sender: FDA-Public Use
  Company Number: PHEH2019US005293

PATIENT
  Age: 82 Year
  Sex: Male

DRUGS (1)
  1. COSENTYX [Suspect]
     Active Substance: SECUKINUMAB
     Indication: PSORIASIS
     Dosage: 300 MG, UNK
     Route: 065
     Dates: start: 20190119

REACTIONS (5)
  - Swelling [Unknown]
  - Chest pain [Unknown]
  - Oropharyngeal pain [Unknown]
  - Dry throat [Unknown]
  - Diarrhoea [Unknown]
